FAERS Safety Report 6940503-9 (Version None)
Quarter: 2010Q3

REPORT INFORMATION
  Report Type: 
  Country: None (occurrence: None)
  Receive Date: 20100825
  Receipt Date: 20100817
  Transmission Date: 20110219
  Serious: Yes (Other)
  Sender: FDA-Public Use
  Company Number: US-SANOFI-AVENTIS-2010SA041190

PATIENT
  Age: 79 Year
  Sex: Male
  Weight: 100 kg

DRUGS (13)
  1. MULTAQ [Suspect]
     Indication: ATRIAL FLUTTER
     Route: 048
     Dates: start: 20100602, end: 20100714
  2. MULTAQ [Suspect]
     Indication: TACHYARRHYTHMIA
     Route: 048
     Dates: start: 20100602, end: 20100714
  3. CYCLOSPORINE [Suspect]
     Indication: LIVER TRANSPLANT
     Route: 065
     Dates: start: 19950101
  4. ALLOPURINOL [Concomitant]
     Indication: GOUT
     Dates: start: 19960101
  5. DOCUSATE [Concomitant]
  6. CALCIUM [Concomitant]
  7. ASPIRIN [Concomitant]
  8. COUMADIN [Concomitant]
     Dates: start: 20050101
  9. LOVAZA [Concomitant]
  10. ALENDRONATE SODIUM [Concomitant]
  11. KAYEXALATE [Concomitant]
  12. METOPROLOL [Concomitant]
     Indication: BLOOD PRESSURE
     Dates: start: 20050101
  13. MECLIZINE [Concomitant]

REACTIONS (4)
  - BLOOD CREATININE INCREASED [None]
  - CONDITION AGGRAVATED [None]
  - DRUG INTERACTION [None]
  - RENAL FAILURE CHRONIC [None]
